FAERS Safety Report 8190228-X (Version None)
Quarter: 2012Q1

REPORT INFORMATION
  Report Type: 
  Country: None (occurrence: None)
  Receive Date: 20120221
  Receipt Date: 20120103
  Transmission Date: 20120608
  Serious: No
  Sender: FDA-Public Use
  Company Number: 1000026676

PATIENT
  Age: 67 Year
  Sex: Female
  Weight: 49.4 kg

DRUGS (3)
  1. VIIBRYD [Suspect]
     Indication: MAJOR DEPRESSION
     Dosage: 10 MG (10 MG,1 IN 1 D),ORAL,  20 MG (20 MG, 1 IN 1 D(.ORAL, 40 MG (40 MG,1 IN 1 D),ORAL
     Route: 048
     Dates: start: 20111217, end: 20111224
  2. VIIBRYD [Suspect]
     Indication: MAJOR DEPRESSION
     Dosage: 10 MG (10 MG,1 IN 1 D),ORAL,  20 MG (20 MG, 1 IN 1 D(.ORAL, 40 MG (40 MG,1 IN 1 D),ORAL
     Route: 048
     Dates: start: 20111225
  3. VIIBRYD [Suspect]
     Indication: MAJOR DEPRESSION
     Dosage: 10 MG (10 MG,1 IN 1 D),ORAL,  20 MG (20 MG, 1 IN 1 D(.ORAL, 40 MG (40 MG,1 IN 1 D),ORAL
     Route: 048
     Dates: start: 20111209, end: 20111216

REACTIONS (4)
  - DRY MOUTH [None]
  - FATIGUE [None]
  - WEIGHT INCREASED [None]
  - NAUSEA [None]
